FAERS Safety Report 23819218 (Version 1)
Quarter: 2024Q2

REPORT INFORMATION
  Report Type: Report from Study
  Country: CA (occurrence: CA)
  Receive Date: 20240506
  Receipt Date: 20240506
  Transmission Date: 20240716
  Serious: Yes (Other)
  Sender: FDA-Public Use
  Company Number: CA-TAKEDA-2022TUS020492

PATIENT
  Sex: Female

DRUGS (2)
  1. VEDOLIZUMAB [Suspect]
     Active Substance: VEDOLIZUMAB
     Indication: Crohn^s disease
     Dosage: 300 MILLIGRAM
     Route: 042
     Dates: start: 20211020
  2. VEDOLIZUMAB [Suspect]
     Active Substance: VEDOLIZUMAB
     Indication: Crohn^s disease
     Dosage: 108 MILLIGRAM, Q2WEEKS
     Route: 058
     Dates: start: 20220519

REACTIONS (10)
  - Extranodal marginal zone B-cell lymphoma (MALT type) [Unknown]
  - Renal cancer [Unknown]
  - Lung neoplasm malignant [Unknown]
  - Abdominal discomfort [Unknown]
  - Malaise [Unknown]
  - Abdominal mass [Unknown]
  - Abdominal pain [Unknown]
  - Flatulence [Unknown]
  - Constipation [Unknown]
  - Nausea [Unknown]
